FAERS Safety Report 26044789 (Version 1)
Quarter: 2025Q4

REPORT INFORMATION
  Report Type: Report from Study
  Country: GB (occurrence: GB)
  Receive Date: 20251114
  Receipt Date: 20251114
  Transmission Date: 20260119
  Serious: Yes (Other)
  Sender: TEVA
  Company Number: GB-TEVA-VS-3390436

PATIENT
  Age: 59 Year
  Sex: Female

DRUGS (1)
  1. AJOVY [Suspect]
     Active Substance: FREMANEZUMAB-VFRM
     Indication: Headache
     Dosage: AJOVY 225MG/1.5ML PFP 3
     Route: 058

REACTIONS (2)
  - Speech disorder [Recovering/Resolving]
  - Discomfort [Recovering/Resolving]
